FAERS Safety Report 8045561-9 (Version None)
Quarter: 2012Q1

REPORT INFORMATION
  Report Type: 
  Country: None (occurrence: None)
  Receive Date: 20120113
  Receipt Date: 20120110
  Transmission Date: 20120608
  Serious: Yes (Other)
  Sender: FDA-Public Use
  Company Number: DE-PFIZER INC-2012006970

PATIENT
  Age: 64 Year
  Sex: Male

DRUGS (1)
  1. ALPRAZOLAM [Suspect]
     Indication: ANXIETY DISORDER
     Dosage: 0.5 MG, 2X/DAY
     Dates: start: 19970101

REACTIONS (2)
  - MYOCARDIAL INFARCTION [None]
  - SUICIDAL IDEATION [None]
